FAERS Safety Report 23463430 (Version 1)
Quarter: 2024Q1

REPORT INFORMATION
  Report Type: Spontaneous
  Country: JP (occurrence: JP)
  Receive Date: 20240131
  Receipt Date: 20240131
  Transmission Date: 20240410
  Serious: Yes (Other)
  Sender: FDA-Public Use
  Company Number: JP-MSD-2201JPN001133J

PATIENT
  Age: 7 Decade
  Sex: Female

DRUGS (4)
  1. KEYTRUDA [Suspect]
     Active Substance: PEMBROLIZUMAB
     Indication: Gingival cancer
     Dosage: UNK
     Route: 041
  2. APREPITANT [Suspect]
     Active Substance: APREPITANT
     Dosage: UNK
     Route: 065
  3. CISPLATIN [Concomitant]
     Active Substance: CISPLATIN
     Indication: Gingival cancer
     Dosage: UNK
     Route: 051
  4. FLUOROURACIL [Concomitant]
     Active Substance: FLUOROURACIL
     Indication: Gingival cancer
     Dosage: UNK
     Route: 051

REACTIONS (4)
  - Malignant neoplasm progression [Unknown]
  - Hepatic function abnormal [Unknown]
  - Malaise [Unknown]
  - Decreased appetite [Unknown]
